FAERS Safety Report 19966698 (Version 1)
Quarter: 2021Q4

REPORT INFORMATION
  Report Type: Spontaneous
  Country: CN (occurrence: CN)
  Receive Date: 20211019
  Receipt Date: 20211019
  Transmission Date: 20220304
  Serious: Yes (Other)
  Sender: FDA-Public Use
  Company Number: CN-ROCHE-2934610

PATIENT
  Age: 60 Year
  Sex: Male

DRUGS (5)
  1. MABTHERA [Suspect]
     Active Substance: RITUXIMAB
     Indication: Follicular lymphoma
     Dosage: R-CHOP FOR 5 CYCLES
     Route: 065
     Dates: start: 20181003
  2. CYCLOPHOSPHAMIDE [Concomitant]
     Active Substance: CYCLOPHOSPHAMIDE
     Indication: Follicular lymphoma
     Dosage: R-CHOP FOR 5 CYCLES
     Dates: start: 20181003
  3. DOXORUBICIN [Concomitant]
     Active Substance: DOXORUBICIN
     Indication: Follicular lymphoma
     Dosage: R-CHOP FOR 5 CYCLES
     Dates: start: 20181003
  4. VINCRISTINE [Concomitant]
     Active Substance: VINCRISTINE
     Indication: Follicular lymphoma
     Dosage: R-CHOP FOR 5 CYCLES
     Dates: start: 20181003
  5. PREDNISONE [Concomitant]
     Active Substance: PREDNISONE
     Indication: Follicular lymphoma
     Dosage: R-CHOP FOR 5 CYCLES
     Dates: start: 20181003

REACTIONS (2)
  - Interstitial lung disease [Unknown]
  - Disease recurrence [Unknown]

NARRATIVE: CASE EVENT DATE: 20190301
